FAERS Safety Report 7911542 (Version 2)
Quarter: 2012Q4

REPORT INFORMATION
  Report Type: 
  Country: VE (occurrence: VE)
  Receive Date: 20110422
  Receipt Date: 20121220
  Transmission Date: 20130627
  Serious: Yes (Death, Other)
  Sender: FDA-Public Use
  Company Number: PHHY2011VE33185

PATIENT
  Sex: Male

DRUGS (1)
  1. DIOVAN HCT [Suspect]
     Indication: HYPERTENSION
     Dosage: 1 DF (160 mg vals / 12.5 mg HCTZ), UNK
     Route: 048

REACTIONS (2)
  - Diabetic complication [Fatal]
  - Diabetes mellitus [Unknown]
